FAERS Safety Report 5626937-3 (Version None)
Quarter: 2008Q1

REPORT INFORMATION
  Report Type: 
  Country: None (occurrence: None)
  Receive Date: 20080212
  Receipt Date: 20080128
  Transmission Date: 20080703
  Serious: Yes (Hospitalization)
  Sender: FDA-Public Use
  Company Number: M7001-02889-CLI-DE

PATIENT
  Age: 63 Year
  Sex: Female
  Weight: 71 kg

DRUGS (3)
  1. TARGRETIN [Suspect]
     Indication: MYCOSIS FUNGOIDES
     Dosage: 150 MG, 1 IN 1 D, ORAL
     Route: 048
     Dates: start: 20071004, end: 20071106
  2. FENOFIBRATE [Concomitant]
  3. L-THYROXINE (LEVOTHYROXINE) [Concomitant]

REACTIONS (2)
  - CONSTIPATION [None]
  - DIVERTICULITIS [None]
